FAERS Safety Report 18837198 (Version 1)
Quarter: 2021Q1

REPORT INFORMATION
  Report Type: Spontaneous
  Country: US (occurrence: US)
  Receive Date: 20210203
  Receipt Date: 20210203
  Transmission Date: 20210419
  Serious: No
  Sender: FDA-Public Use
  Company Number: US-ALLERGAN-2028961US

PATIENT
  Sex: Female

DRUGS (11)
  1. BOTOX COSMETIC [Suspect]
     Active Substance: ONABOTULINUMTOXINA
     Indication: SKIN WRINKLING
     Dosage: 10 UNITS, SINGLE
     Dates: start: 20200705, end: 20200705
  2. BOTOX COSMETIC [Suspect]
     Active Substance: ONABOTULINUMTOXINA
     Indication: SKIN WRINKLING
     Dosage: 4 UNITS, SINGLE
     Dates: start: 20200705, end: 20200705
  3. DHA [Concomitant]
     Active Substance: DIETARY SUPPLEMENT
  4. BOTOX COSMETIC [Suspect]
     Active Substance: ONABOTULINUMTOXINA
     Indication: SKIN WRINKLING
     Dosage: 22 UNITS, SINGLE
     Dates: start: 20200705, end: 20200705
  5. BOTOX COSMETIC [Suspect]
     Active Substance: ONABOTULINUMTOXINA
     Indication: SKIN WRINKLING
     Dosage: 4 UNITS, SINGLE
     Dates: start: 20200705, end: 20200705
  6. MAGNESIUM [Concomitant]
     Active Substance: MAGNESIUM
  7. FISH OIL [Concomitant]
     Active Substance: FISH OIL
  8. BOTOX COSMETIC [Suspect]
     Active Substance: ONABOTULINUMTOXINA
     Indication: SKIN WRINKLING
     Dosage: 22 UNITS, SINGLE
     Dates: start: 20200705, end: 20200705
  9. BOTOX COSMETIC [Suspect]
     Active Substance: ONABOTULINUMTOXINA
     Indication: SKIN WRINKLING
     Dosage: 12 UNITS, SINGLE
     Dates: start: 20200705, end: 20200705
  10. BOTOX COSMETIC [Suspect]
     Active Substance: ONABOTULINUMTOXINA
     Indication: SKIN WRINKLING
     Dosage: 22 UNITS, SINGLE
     Dates: start: 20200705, end: 20200705
  11. BOTOX COSMETIC [Suspect]
     Active Substance: ONABOTULINUMTOXINA
     Indication: SKIN WRINKLING
     Dosage: 4 UNITS, SINGLE
     Dates: start: 20200705, end: 20200705

REACTIONS (3)
  - Drug ineffective [Unknown]
  - Off label use [Unknown]
  - Drug ineffective for unapproved indication [Unknown]
